FAERS Safety Report 22275376 (Version 1)
Quarter: 2023Q2

REPORT INFORMATION
  Report Type: Spontaneous
  Country: US (occurrence: None)
  Receive Date: 20230502
  Receipt Date: 20230502
  Transmission Date: 20230722
  Serious: No
  Sender: FDA-Public Use
  Company Number: None

PATIENT
  Age: 85 Year
  Sex: Female
  Weight: 72.53 kg

DRUGS (21)
  1. CAPECITABINE [Suspect]
     Active Substance: CAPECITABINE
     Indication: Breast cancer female
  2. ASCORBIC ACID [Concomitant]
  3. ATORVASTATIN [Concomitant]
  4. BUMETANIDE [Concomitant]
  5. CLOPIDOGREL BISULFATE [Concomitant]
  6. EXEMESTANE [Concomitant]
  7. FAMOTIDINE [Concomitant]
  8. FERROUS GLUCONATE [Concomitant]
  9. ALLERCLEAR [Concomitant]
  10. LEVOTHYROXINE [Concomitant]
  11. METOPROLOL TARTRATE [Concomitant]
  12. MULTIVITAMINS [Concomitant]
  13. PANTOPRAZOLE [Concomitant]
  14. POTASSIUM CHLORIDE [Concomitant]
  15. RISPERIDONE [Concomitant]
  16. CALCIUM-VITAMIN D [Concomitant]
  17. SYSTANE [Concomitant]
  18. ASPIRIN [Concomitant]
  19. TORSEMIDE CHILDRENS ASPIRIN [Concomitant]
  20. VITAMIN B12 [Concomitant]
     Active Substance: CYANOCOBALAMIN
  21. VITAMIN D3 [Concomitant]

REACTIONS (3)
  - Breast cancer female [None]
  - Disease progression [None]
  - Hospice care [None]
